FAERS Safety Report 6579258-9 (Version None)
Quarter: 2010Q1

REPORT INFORMATION
  Report Type: 
  Country: None (occurrence: None)
  Receive Date: 20100212
  Receipt Date: 20100208
  Transmission Date: 20100710
  Serious: Yes (Hospitalization)
  Sender: FDA-Public Use
  Company Number: ES-ELI_LILLY_AND_COMPANY-ES201002000030

PATIENT
  Sex: Female
  Weight: 65 kg

DRUGS (14)
  1. GEMCITABINE HCL [Suspect]
     Indication: BREAST CANCER METASTATIC
     Dosage: 1250 MG/M2, (2060MG) D1 AND D8 EVERY 3 WEEKS
     Route: 042
     Dates: start: 20090629
  2. GEMCITABINE HCL [Suspect]
     Dosage: 1250 MG/M2,(1975MG) D8 OF 3 WEEK CYCLE
     Route: 042
     Dates: start: 20100114
  3. PACLITAXEL [Suspect]
     Indication: BREAST CANCER METASTATIC
     Dosage: 175 MG/M2, (290MG) D1 EVERY 3 WEEKS
     Route: 042
     Dates: start: 20090629
  4. PACLITAXEL [Suspect]
     Dosage: 175 MG/M2, (275 MG) D1 EVERY 3 WEEKS
     Route: 042
     Dates: start: 20100107
  5. PANTOPRAZOLE [Concomitant]
  6. REGULATEN [Concomitant]
  7. EUTIROX [Concomitant]
  8. ESERTIA [Concomitant]
  9. PLANTABEN [Concomitant]
  10. FRAXIPARINA [Concomitant]
  11. DACORTIN [Concomitant]
  12. SEGURIL [Concomitant]
  13. ZOFRAN [Concomitant]
     Dates: start: 20071026, end: 20091027
  14. MOVICOL [Concomitant]
     Dates: start: 20091007

REACTIONS (4)
  - DYSPNOEA [None]
  - LEUKOPENIA [None]
  - ORTHOPNOEA [None]
  - UPPER RESPIRATORY TRACT INFECTION [None]
